FAERS Safety Report 5446897-8 (Version None)
Quarter: 2007Q3

REPORT INFORMATION
  Report Type: 
  Country: None (occurrence: None)
  Receive Date: 20070907
  Receipt Date: 20070829
  Transmission Date: 20080115
  Serious: Yes (Hospitalization, Other)
  Sender: FDA-Public Use
  Company Number: GT-ABBOTT-07P-069-0415596-00

PATIENT
  Age: 52 Year
  Sex: Female

DRUGS (2)
  1. REDUCTIL 15MG [Suspect]
     Indication: OVERWEIGHT
     Route: 048
  2. REDUCTIL 15MG [Suspect]

REACTIONS (7)
  - ANXIETY [None]
  - HYPERTENSION [None]
  - OSTEOPOROSIS [None]
  - PALPITATIONS [None]
  - PULMONARY EMBOLISM [None]
  - SUPRAVENTRICULAR EXTRASYSTOLES [None]
  - SYNCOPE [None]
